FAERS Safety Report 23781608 (Version 5)
Quarter: 2024Q2

REPORT INFORMATION
  Report Type: Spontaneous
  Country: CA (occurrence: CA)
  Receive Date: 20240425
  Receipt Date: 20240629
  Transmission Date: 20240716
  Serious: Yes (Other)
  Sender: FDA-Public Use
  Company Number: CA-CELLTRION INC.-2024CA009529

PATIENT

DRUGS (6)
  1. INFLECTRA [Suspect]
     Active Substance: INFLIXIMAB-DYYB
     Indication: Colitis ulcerative
     Dosage: 5 MG/KG, EVERY 8 WEEK, (Q 0, 2, 6, THEN EVERY 8 WEEKS)
     Route: 042
     Dates: start: 20240227
  2. INFLECTRA [Suspect]
     Active Substance: INFLIXIMAB-DYYB
     Dosage: 5 MG/KG, EVERY 8 WEEK
     Route: 042
     Dates: start: 20240314
  3. INFLECTRA [Suspect]
     Active Substance: INFLIXIMAB-DYYB
     Dosage: 5 MG/KG, EVERY 8 WEEK
     Route: 042
     Dates: start: 20240411
  4. INFLECTRA [Suspect]
     Active Substance: INFLIXIMAB-DYYB
     Dosage: 5 MG/KG,Q 0, 2, 6, THEN EVERY 8 WEEKS
     Route: 042
     Dates: start: 20240606
  5. VITAMIN B12 [Concomitant]
     Active Substance: CYANOCOBALAMIN
     Dosage: 1 DF
  6. PREDNISONE [Concomitant]
     Active Substance: PREDNISONE
     Dosage: 40 MG (TAPERING DOSE)

REACTIONS (11)
  - Haemoglobin decreased [Not Recovered/Not Resolved]
  - Blood iron decreased [Unknown]
  - Condition aggravated [Recovered/Resolved]
  - Speech disorder [Unknown]
  - Feeling abnormal [Unknown]
  - Asthenia [Unknown]
  - Dizziness [Recovering/Resolving]
  - Vertigo [Not Recovered/Not Resolved]
  - Musculoskeletal stiffness [Not Recovered/Not Resolved]
  - Neck pain [Not Recovered/Not Resolved]
  - Hypotension [Unknown]

NARRATIVE: CASE EVENT DATE: 20240101
